FAERS Safety Report 9525058 (Version 2)
Quarter: 2014Q2

REPORT INFORMATION
  Report Type: Spontaneous
  Country: US (occurrence: None)
  Receive Date: 20130912
  Receipt Date: 20140501
  Transmission Date: 20141212
  Serious: Yes (Other)
  Sender: FDA-Public Use
  Company Number: 2013-US-000120

PATIENT
  Age: 51 Year
  Sex: Male

DRUGS (3)
  1. XYREM [Suspect]
     Indication: INSOMNIA
     Dates: start: 20100505, end: 2010
  2. GABATRIL [Suspect]
     Indication: PRODUCT USED FOR UNKNOWN INDICATION
  3. LORAZEPAM (LORAZEPAM) [Suspect]

REACTIONS (3)
  - Convulsion [None]
  - Drug withdrawal convulsions [None]
  - Off label use [None]
